FAERS Safety Report 7593725-0 (Version None)
Quarter: 2011Q3

REPORT INFORMATION
  Report Type: 
  Country: None (occurrence: None)
  Receive Date: 20110706
  Receipt Date: 20110622
  Transmission Date: 20111222
  Serious: Yes (Hospitalization)
  Sender: FDA-Public Use
  Company Number: PHHY2010CA65034

PATIENT
  Sex: Male

DRUGS (1)
  1. EXJADE [Suspect]
     Indication: THALASSAEMIA
     Dosage: 1500 MG, DAILY
     Route: 048
     Dates: start: 20100801, end: 20110501

REACTIONS (5)
  - LOCALISED INFECTION [None]
  - FULL BLOOD COUNT DECREASED [None]
  - PALLOR [None]
  - DIZZINESS [None]
  - PAIN IN EXTREMITY [None]
